FAERS Safety Report 13321040 (Version 2)
Quarter: 2017Q1

REPORT INFORMATION
  Report Type: Spontaneous
  Country: US (occurrence: US)
  Receive Date: 20170309
  Receipt Date: 20170309
  Transmission Date: 20170428
  Serious: No
  Sender: FDA-Public Use
  Company Number: ALCN2017US001851

PATIENT
  Sex: Female

DRUGS (1)
  1. PATANASE [Suspect]
     Active Substance: OLOPATADINE HYDROCHLORIDE
     Indication: PRODUCT USED FOR UNKNOWN INDICATION
     Dosage: 1 GTT, BID
     Route: 045
     Dates: start: 20170214, end: 20170219

REACTIONS (2)
  - Oropharyngeal pain [Recovered/Resolved]
  - Tongue dry [Recovered/Resolved]

NARRATIVE: CASE EVENT DATE: 20170221
